FAERS Safety Report 5276633-X (Version None)
Quarter: 2007Q1

REPORT INFORMATION
  Report Type: 
  Country: None (occurrence: None)
  Receive Date: 20070327
  Receipt Date: 20070315
  Transmission Date: 20070707
  Serious: Yes (Other)
  Sender: FDA-Public Use
  Company Number: US-JNJFOC-20070303809

PATIENT
  Sex: Male

DRUGS (10)
  1. INFLIXIMAB [Suspect]
     Indication: RHEUMATOID ARTHRITIS
     Route: 042
  2. PLAQUENIL [Concomitant]
  3. OSCAL [Concomitant]
  4. NEXIUM [Concomitant]
  5. NABUMETONE [Concomitant]
  6. ASACOL [Concomitant]
  7. FOLIC ACID [Concomitant]
  8. METHOTREXATE [Concomitant]
  9. ENBREL [Concomitant]
  10. FOSAMAX [Concomitant]

REACTIONS (1)
  - LARGE GRANULAR LYMPHOCYTOSIS [None]
